FAERS Safety Report 21591123 (Version 2)
Quarter: 2022Q4

REPORT INFORMATION
  Report Type: Report from Study
  Country: US (occurrence: US)
  Receive Date: 20221114
  Receipt Date: 20221115
  Transmission Date: 20230112
  Serious: No
  Sender: FDA-Public Use
  Company Number: US-002147023-NVSC2022US252734

PATIENT
  Age: 54 Year
  Sex: Male

DRUGS (2)
  1. OMNITROPE [Suspect]
     Active Substance: SOMATROPIN
     Indication: Growth hormone deficiency
     Dosage: 0.30 ML, QD (FOR 4 DAYS, 30 UNITS)
     Route: 058
     Dates: start: 20221026
  2. OMNITROPE [Suspect]
     Active Substance: SOMATROPIN
     Dosage: 5.8 MG (VIAL)
     Route: 065

REACTIONS (5)
  - Overdose [Unknown]
  - Fatigue [Unknown]
  - Sluggishness [Unknown]
  - Fluid retention [Unknown]
  - Wrong technique in product usage process [Unknown]

NARRATIVE: CASE EVENT DATE: 20221026
